FAERS Safety Report 25886370 (Version 1)
Quarter: 2025Q4

REPORT INFORMATION
  Report Type: Spontaneous
  Country: GB (occurrence: GB)
  Receive Date: 20251006
  Receipt Date: 20251006
  Transmission Date: 20260118
  Serious: Yes (Other)
  Sender: ELI LILLY AND COMPANY
  Company Number: None

PATIENT
  Sex: Female

DRUGS (1)
  1. MOUNJARO [Suspect]
     Active Substance: TIRZEPATIDE
     Indication: Product used for unknown indication
     Dosage: UNK, UNKNOWN
     Route: 065

REACTIONS (5)
  - Contusion [Recovering/Resolving]
  - Dysphonia [Unknown]
  - Heavy menstrual bleeding [Recovered/Resolved]
  - Pruritus [Recovering/Resolving]
  - Coagulation time abnormal [Unknown]

NARRATIVE: CASE EVENT DATE: 20241201
